FAERS Safety Report 7051438-8 (Version None)
Quarter: 2010Q4

REPORT INFORMATION
  Report Type: 
  Country: None (occurrence: None)
  Receive Date: 20101019
  Receipt Date: 20101011
  Transmission Date: 20110411
  Serious: Yes (Hospitalization, Disabling)
  Sender: FDA-Public Use
  Company Number: A0879525A

PATIENT
  Age: 78 Year
  Sex: Female

DRUGS (14)
  1. AVANDIA [Suspect]
     Route: 048
     Dates: start: 20000417, end: 20070109
  2. ASPIRIN [Concomitant]
  3. CELEBREX [Concomitant]
  4. COMBIVENT [Concomitant]
  5. COZAAR [Concomitant]
  6. LASIX [Concomitant]
  7. METOPROLOL [Concomitant]
  8. ALDACTONE [Concomitant]
  9. ISOSORBIDE [Concomitant]
  10. SIMVASTATIN [Concomitant]
  11. NITROGLYCERIN [Concomitant]
  12. NORVASC [Concomitant]
  13. NOVOLIN 70/30 [Concomitant]
  14. PLAVIX [Concomitant]

REACTIONS (4)
  - CARDIAC FAILURE CONGESTIVE [None]
  - CORONARY ARTERY DISEASE [None]
  - MYOCARDIAL INFARCTION [None]
  - RENAL FAILURE [None]
